FAERS Safety Report 5080141-9 (Version None)
Quarter: 2006Q3

REPORT INFORMATION
  Report Type: 
  Country: None (occurrence: None)
  Receive Date: 20060810
  Receipt Date: 20060728
  Transmission Date: 20061208
  Serious: Yes (Hospitalization)
  Sender: FDA-Public Use
  Company Number: US200607005373

PATIENT
  Age: 37 Year
  Sex: Female

DRUGS (2)
  1. HUMATROPE [Suspect]
     Indication: PITUITARY TUMOUR
     Dosage: 0.9 MG, DAILY (1/D)
     Dates: start: 20030101
  2. HUMATROPEN (HUMATROPEN) PEN,REUSABLE [Concomitant]

REACTIONS (6)
  - BRONCHITIS ACUTE [None]
  - CARDIAC FAILURE CONGESTIVE [None]
  - DEVICE LEAKAGE [None]
  - HYPERTENSION [None]
  - PHARMACEUTICAL PRODUCT COMPLAINT [None]
  - TACHYCARDIA [None]
